FAERS Safety Report 4366902-X (Version None)
Quarter: 2004Q2

REPORT INFORMATION
  Report Type: 
  Country: None (occurrence: None)
  Receive Date: 20040526
  Receipt Date: 20040526
  Transmission Date: 20050107
  Serious: Yes (Hospitalization)
  Sender: FDA-Public Use
  Company Number: None

PATIENT
  Sex: Male
  Weight: 63 kg

DRUGS (5)
  1. ARENIC TRIOXIDE [Suspect]
     Indication: METASTATIC MALIGNANT MELANOMA
     Dosage: SEE IMAGE
     Dates: start: 20040412, end: 20040416
  2. ARENIC TRIOXIDE [Suspect]
     Indication: METASTATIC MALIGNANT MELANOMA
     Dosage: SEE IMAGE
     Dates: start: 20040503, end: 20040510
  3. ARENIC TRIOXIDE [Suspect]
     Indication: METASTATIC MALIGNANT MELANOMA
     Dosage: SEE IMAGE
     Dates: start: 20040513
  4. ASCORBIC ACUD [Suspect]
     Indication: METASTATIC MALIGNANT MELANOMA
     Dosage: SEE IMAGE
     Dates: start: 20040412, end: 20040416
  5. ASCORBIC ACUD [Suspect]
     Indication: METASTATIC MALIGNANT MELANOMA
     Dosage: SEE IMAGE
     Dates: start: 20040513, end: 20040513

REACTIONS (13)
  - ARTHRALGIA [None]
  - DYSPNOEA [None]
  - FATIGUE [None]
  - HYPERCALCAEMIA [None]
  - LIVER FUNCTION TEST ABNORMAL [None]
  - MALIGNANT NEOPLASM PROGRESSION [None]
  - METASTASES TO SPINE [None]
  - NAUSEA [None]
  - PAIN [None]
  - PERIPHERAL SENSORY NEUROPATHY [None]
  - PULMONARY VASCULAR DISORDER [None]
  - SPINAL CORD COMPRESSION [None]
  - VOMITING [None]
